FAERS Safety Report 9426526 (Version 2)
Quarter: 2013Q4

REPORT INFORMATION
  Report Type: Spontaneous
  Country: CH (occurrence: CH)
  Receive Date: 20130730
  Receipt Date: 20131126
  Transmission Date: 20140711
  Serious: Yes (Hospitalization, Other)
  Sender: FDA-Public Use
  Company Number: CH-RANBAXY-2013RR-71598

PATIENT
  Age: 78 Year
  Sex: Male

DRUGS (4)
  1. ACENOCOUMAROL [Suspect]
     Indication: ATRIAL FIBRILLATION
     Dosage: 2 MG/DAY
     Route: 048
  2. AMOXICILLIN/CLAVULANIC ACID [Interacting]
     Indication: PERITONSILLAR ABSCESS
     Dosage: UNK
     Route: 065
  3. AMOXICILLIN + CLAVULANATE POTASSIUM [Interacting]
     Indication: PERITONSILLAR ABSCESS
     Dosage: UNK
     Route: 042
  4. DIGOXIN [Concomitant]
     Indication: ATRIAL FIBRILLATION
     Dosage: UNK
     Route: 065

REACTIONS (4)
  - Haematoma [Recovered/Resolved]
  - Odynophagia [Recovered/Resolved]
  - Obstructive airways disorder [Recovered/Resolved]
  - Drug interaction [Recovered/Resolved]
